FAERS Safety Report 11547161 (Version 1)
Quarter: 2015Q3

REPORT INFORMATION
  Report Type: Spontaneous
  Country: US (occurrence: US)
  Receive Date: 20150903
  Receipt Date: 20150903
  Transmission Date: 20151125
  Serious: No
  Sender: FDA-Public Use
  Company Number: US-ELI_LILLY_AND_COMPANY-US201101001730

PATIENT
  Sex: Female

DRUGS (1)
  1. HUMALOG [Suspect]
     Active Substance: INSULIN LISPRO
     Indication: DIABETES MELLITUS
     Route: 058

REACTIONS (8)
  - Systemic lupus erythematosus [Not Recovered/Not Resolved]
  - Blood glucose increased [Unknown]
  - Memory impairment [Unknown]
  - Drug effect decreased [Unknown]
  - Stress [Unknown]
  - Food allergy [Unknown]
  - Blood glucose decreased [Unknown]
  - Fatigue [Unknown]
